FAERS Safety Report 9784845 (Version 3)
Quarter: 2014Q1

REPORT INFORMATION
  Report Type: Spontaneous
  Country: US (occurrence: US)
  Receive Date: 20131227
  Receipt Date: 20140217
  Transmission Date: 20141002
  Serious: Yes (Hospitalization)
  Sender: FDA-Public Use
  Company Number: US-BIOGENIDEC-2013BI123296

PATIENT
  Age: 71 Year
  Sex: Female

DRUGS (8)
  1. TECFIDERA [Suspect]
     Indication: MULTIPLE SCLEROSIS
     Route: 048
     Dates: start: 20131201, end: 20131207
  2. TECFIDERA [Suspect]
     Indication: MULTIPLE SCLEROSIS
     Route: 048
     Dates: start: 20131208
  3. TECFIDERA [Suspect]
     Indication: MULTIPLE SCLEROSIS
     Route: 048
  4. CRESTOR [Concomitant]
     Route: 048
  5. SYNTHROID [Concomitant]
     Route: 048
  6. VITAMIN D [Concomitant]
  7. CLONZEPAM [Concomitant]
  8. HYDROCODONE/ACETAMINOPHEN [Concomitant]
     Indication: PAIN

REACTIONS (5)
  - Presyncope [Recovered/Resolved]
  - Syncope [Recovered/Resolved]
  - Weight increased [Not Recovered/Not Resolved]
  - Flushing [Recovered/Resolved]
  - Prescribed underdose [Unknown]
